FAERS Safety Report 10359492 (Version 1)
Quarter: 2014Q3

REPORT INFORMATION
  Report Type: Spontaneous
  Country: JP (occurrence: JP)
  Receive Date: 20140804
  Receipt Date: 20140804
  Transmission Date: 20150326
  Serious: Yes (Death, Life-Threatening)
  Sender: FDA-Public Use
  Company Number: JP-MALLINCKRODT-T201403011

PATIENT
  Age: 76 Year
  Sex: Male

DRUGS (14)
  1. NEXIUM [Concomitant]
     Active Substance: ESOMEPRAZOLE MAGNESIUM
     Dosage: 20 MG, UNK
     Route: 048
     Dates: end: 20140409
  2. DRAMAMINE [Concomitant]
     Active Substance: DIMENHYDRINATE
     Dosage: 50 MG, UNK
     Route: 048
     Dates: end: 20140409
  3. TRESIBA [Concomitant]
     Active Substance: INSULIN DEGLUDEC
     Dosage: 6 DF, UNK
     Route: 051
     Dates: end: 20140408
  4. METHADONE [Suspect]
     Active Substance: METHADONE HYDROCHLORIDE
     Indication: CANCER PAIN
     Dosage: 5 MG (15 MG DAILY DOSE)
     Route: 048
     Dates: start: 20140311, end: 20140316
  5. FLIVAS [Concomitant]
     Active Substance: NAFTOPIDIL
     Dosage: 50 MG, UNK
     Route: 048
     Dates: end: 20140409
  6. DOGMATYL [Concomitant]
     Active Substance: SULPIRIDE
     Dosage: 50 MG, UNK
     Route: 048
     Dates: end: 20140409
  7. NOVORAPID [Concomitant]
     Active Substance: INSULIN ASPART
     Dosage: 9 DF, UNK
     Route: 051
     Dates: end: 20140411
  8. LORAZEPAM. [Concomitant]
     Active Substance: LORAZEPAM
     Dosage: 0.5 MG, UNK
     Route: 048
     Dates: end: 20140409
  9. TRAZODONE [Concomitant]
     Active Substance: TRAZODONE HYDROCHLORIDE
     Dosage: 25 MG, UNK
     Route: 048
     Dates: end: 20140409
  10. PURSENNID                          /00142207/ [Concomitant]
     Active Substance: SENNOSIDES A AND B CALCIUM
     Dosage: 24 MG, UNK
     Route: 048
     Dates: end: 20140409
  11. MAGMITT [Concomitant]
     Active Substance: MAGNESIUM OXIDE
     Dosage: 1980 MG, UNK
     Route: 048
     Dates: end: 20140409
  12. METHADONE [Suspect]
     Active Substance: METHADONE HYDROCHLORIDE
     Dosage: 5 MG (10 MG DAILY DOSE)
     Route: 048
     Dates: start: 20140317, end: 20140408
  13. THYRADIN [Concomitant]
     Active Substance: LEVOTHYROXINE
     Dosage: 50 ?G, UNK
     Route: 048
     Dates: end: 20140409
  14. GABAPEN [Concomitant]
     Active Substance: GABAPENTIN
     Dosage: 150 MG, UNK
     Route: 048
     Dates: end: 20140409

REACTIONS (3)
  - Pancreatic carcinoma [Fatal]
  - Altered state of consciousness [Fatal]
  - Cholangitis [Not Recovered/Not Resolved]

NARRATIVE: CASE EVENT DATE: 20140404
